FAERS Safety Report 5081930-7 (Version None)
Quarter: 2006Q3

REPORT INFORMATION
  Report Type: 
  Country: None (occurrence: None)
  Receive Date: 20060811
  Receipt Date: 20060728
  Transmission Date: 20061208
  Serious: Yes (Other)
  Sender: FDA-Public Use
  Company Number: POMP-10791

PATIENT
  Age: 29 Year
  Sex: Female
  Weight: 34 kg

DRUGS (2)
  1. ALPHA-GLUCOSIDASE  ( HUMAN, RECOMBINANT, CHO CELLS, GENZYME) [Suspect]
     Indication: GLYCOGEN STORAGE DISEASE TYPE II
     Dosage: 20 MG/KG Q2WKS IV
     Route: 042
     Dates: start: 20060615
  2. RANITIDINE [Concomitant]

REACTIONS (7)
  - FACE OEDEMA [None]
  - GASTRIC ULCER [None]
  - INFUSION RELATED REACTION [None]
  - PRURITUS [None]
  - RASH MACULO-PAPULAR [None]
  - TACHYCARDIA [None]
  - URTICARIA GENERALISED [None]
